FAERS Safety Report 5470281-4 (Version None)
Quarter: 2007Q3

REPORT INFORMATION
  Report Type: 
  Country: None (occurrence: None)
  Receive Date: 20070924
  Receipt Date: 20070914
  Transmission Date: 20080115
  Serious: Yes (Other)
  Sender: FDA-Public Use
  Company Number: JPI-P-002170

PATIENT
  Age: 11 Year
  Sex: Female
  Weight: 33.5662 kg

DRUGS (12)
  1. XYREM [Suspect]
     Indication: NARCOLEPSY
     Dosage: 2.25 GM (2.25 GM, 1 IN 1 D), ORAL
     Route: 048
     Dates: start: 20070828
  2. LANSOPRAZOLE [Concomitant]
  3. METOCLOPRAMIDE (METOCLOPRAMIDE) [Concomitant]
  4. TOPIRAMATE [Concomitant]
  5. TIZANIDINE HCL [Concomitant]
  6. IMMUNE GLOBULIN (IMMUNOGLOBULIN) [Concomitant]
  7. BOTULINUM TOXIN TYPE A (BOTULINUM TOXIN TYPE A) [Concomitant]
  8. MODAFINIL [Concomitant]
  9. MONTELUKAST SODIUM [Concomitant]
  10. CETIRIZINE HCL [Concomitant]
  11. ONDANSETRON HYDROCHLORIDE [Concomitant]
  12. PROMETHAZINE [Concomitant]

REACTIONS (3)
  - LYMPHADENOPATHY [None]
  - NEUTROPENIA [None]
  - WHITE BLOOD CELL COUNT DECREASED [None]
